FAERS Safety Report 15451744 (Version 5)
Quarter: 2020Q3

REPORT INFORMATION
  Report Type: Other
  Country: US (occurrence: US)
  Receive Date: 20181001
  Receipt Date: 20200918
  Transmission Date: 20201102
  Serious: Yes (Other)
  Sender: FDA-Public Use
  Company Number: US-ROCHE-2192143

PATIENT
  Sex: Female

DRUGS (13)
  1. RYDAPT [Concomitant]
     Active Substance: MIDOSTAURIN
  2. CLOBETASOL PROPIONATE. [Concomitant]
     Active Substance: CLOBETASOL PROPIONATE
  3. XOLAIR [Suspect]
     Active Substance: OMALIZUMAB
     Indication: IDIOPATHIC URTICARIA
     Dosage: 3 INJECTIONS
     Route: 042
  4. TARCEVA [Suspect]
     Active Substance: ERLOTINIB HYDROCHLORIDE
     Indication: LUNG CANCER METASTATIC
     Route: 065
  5. PREDNISONE. [Concomitant]
     Active Substance: PREDNISONE
  6. PEPCID [Concomitant]
     Active Substance: FAMOTIDINE
  7. ONDANSETRON [Concomitant]
     Active Substance: ONDANSETRON
  8. EPINEPHRINE. [Concomitant]
     Active Substance: EPINEPHRINE
  9. OSIMERTINIB. [Suspect]
     Active Substance: OSIMERTINIB
     Indication: PRODUCT USED FOR UNKNOWN INDICATION
     Route: 065
  10. XOLAIR [Suspect]
     Active Substance: OMALIZUMAB
     Indication: NEOPLASM
  11. CALCIUM CITRATE [Concomitant]
     Active Substance: CALCIUM CITRATE
  12. TAGRISSO [Concomitant]
     Active Substance: OSIMERTINIB
  13. XOLAIR [Suspect]
     Active Substance: OMALIZUMAB
     Indication: URTICARIA
     Route: 058

REACTIONS (20)
  - Flushing [Unknown]
  - Diarrhoea [Unknown]
  - Dizziness [Unknown]
  - Pyrexia [Unknown]
  - Chills [Unknown]
  - Rhinorrhoea [Unknown]
  - Anaphylactic reaction [Unknown]
  - Nasal congestion [Unknown]
  - Nausea [Unknown]
  - Circulatory collapse [Unknown]
  - Chest discomfort [Unknown]
  - White blood cell count increased [Unknown]
  - Dyspnoea [Unknown]
  - Vomiting [Unknown]
  - Neutrophilia [Unknown]
  - Urticaria [Unknown]
  - Presyncope [Unknown]
  - Abdominal distension [Unknown]
  - Abdominal pain [Unknown]
  - Hyperhidrosis [Unknown]
